FAERS Safety Report 20019978 (Version 7)
Quarter: 2022Q3

REPORT INFORMATION
  Report Type: Spontaneous
  Country: CO (occurrence: CO)
  Receive Date: 20211101
  Receipt Date: 20220713
  Transmission Date: 20221027
  Serious: Yes (Other)
  Sender: FDA-Public Use
  Company Number: CO-GLAXOSMITHKLINE-CO2021AMR222436

PATIENT

DRUGS (8)
  1. NUCALA [Suspect]
     Active Substance: MEPOLIZUMAB
     Indication: Asthmatic crisis
     Dosage: 100 MG
     Dates: start: 20200930
  2. NUCALA [Suspect]
     Active Substance: MEPOLIZUMAB
     Indication: Asthma
  3. PREDNISOLONE [Concomitant]
     Active Substance: PREDNISOLONE
     Indication: Product used for unknown indication
     Dosage: UNK
  4. CETIRIZINE [Concomitant]
     Active Substance: CETIRIZINE HYDROCHLORIDE
     Indication: Product used for unknown indication
     Dosage: UNK
  5. FLUTICASONE PROPIONATE [Concomitant]
     Active Substance: FLUTICASONE PROPIONATE
     Indication: Product used for unknown indication
     Dosage: UNK, 1 SPRAY IN EACH NOSTRIL E / 24 H
  6. BUDESONIDE\FORMOTEROL [Concomitant]
     Active Substance: BUDESONIDE\FORMOTEROL
     Indication: Product used for unknown indication
     Dosage: 2 PUFF(S), BID
  7. TIOTROPIUM BROMIDE [Concomitant]
     Active Substance: TIOTROPIUM BROMIDE
     Indication: Product used for unknown indication
     Dosage: 2 PUFF(S), QD
  8. ALBUTEROL [Concomitant]
     Active Substance: ALBUTEROL
     Indication: Product used for unknown indication
     Dosage: UNK, AS NEEDED

REACTIONS (21)
  - Asthmatic crisis [Not Recovered/Not Resolved]
  - Atypical pneumonia [Unknown]
  - Pneumonia [Unknown]
  - Interstitial lung disease [Unknown]
  - Asthma [Not Recovered/Not Resolved]
  - Cough [Not Recovered/Not Resolved]
  - Dyspnoea [Not Recovered/Not Resolved]
  - Chest discomfort [Not Recovered/Not Resolved]
  - Wheezing [Not Recovered/Not Resolved]
  - Bronchitis [Unknown]
  - Back pain [Recovered/Resolved]
  - Urine odour abnormal [Recovered/Resolved]
  - Abdominal pain [Recovered/Resolved]
  - Dysuria [Recovered/Resolved]
  - Pelvic pain [Recovered/Resolved]
  - Polyuria [Recovered/Resolved]
  - Urinary tract infection [Recovered/Resolved]
  - Headache [Unknown]
  - Fatigue [Unknown]
  - Drug ineffective [Unknown]
  - Product use in unapproved indication [Unknown]

NARRATIVE: CASE EVENT DATE: 20211025
